FAERS Safety Report 4839464-8 (Version None)
Quarter: 2005Q4

REPORT INFORMATION
  Report Type: 
  Country: None (occurrence: None)
  Receive Date: 20051031
  Receipt Date: 20050926
  Transmission Date: 20060501
  Serious: No
  Sender: FDA-Public Use
  Company Number: 200516894US

PATIENT
  Sex: 0

DRUGS (1)
  1. KETEK [Suspect]

REACTIONS (1)
  - GASTROINTESTINAL DISORDER [None]
